FAERS Safety Report 14990149 (Version 1)
Quarter: 2018Q2

REPORT INFORMATION
  Report Type: Spontaneous
  Country: US (occurrence: US)
  Receive Date: 20180608
  Receipt Date: 20180608
  Transmission Date: 20180711
  Serious: No
  Sender: FDA-Public Use
  Company Number: US-ROCHE-2042136

PATIENT
  Age: 91 Year
  Sex: Female
  Weight: 61.29 kg

DRUGS (1)
  1. ACTEMRA [Suspect]
     Active Substance: TOCILIZUMAB
     Indication: RHEUMATOID ARTHRITIS
     Dosage: YES
     Route: 058

REACTIONS (2)
  - Syringe issue [Unknown]
  - Body height decreased [Unknown]

NARRATIVE: CASE EVENT DATE: 20171213
